FAERS Safety Report 15367685 (Version 2)
Quarter: 2018Q4

REPORT INFORMATION
  Report Type: Report from Study
  Country: US (occurrence: US)
  Receive Date: 20180910
  Receipt Date: 20181201
  Transmission Date: 20190204
  Serious: Yes (Hospitalization)
  Sender: FDA-Public Use
  Company Number: US-UCBSA-2018039661

PATIENT
  Age: 47 Year
  Sex: Female
  Weight: 108 kg

DRUGS (13)
  1. FOLIC ACID. [Concomitant]
     Active Substance: FOLIC ACID
     Indication: SUPPLEMENTATION THERAPY
     Dosage: 4 MG DAILY DOSE
     Route: 048
     Dates: start: 20140602
  2. POTASSIUM [Concomitant]
     Active Substance: POTASSIUM
     Indication: MUSCLE SPASMS
     Dosage: UNK
     Dates: start: 2000
  3. DEPAKOTE [Concomitant]
     Active Substance: DIVALPROEX SODIUM
     Indication: SEIZURE
     Dosage: 100 MG, 2X/DAY (BID)
     Route: 048
  4. LEVOTHYROXINE. [Concomitant]
     Active Substance: LEVOTHYROXINE
     Indication: HYPOTHYROIDISM
     Dosage: 200 ?G DAILY DOSE
     Route: 048
     Dates: start: 2005
  5. BRIVARACETAM [Suspect]
     Active Substance: BRIVARACETAM
     Indication: PRODUCT USED FOR UNKNOWN INDICATION
     Dosage: 100 MG DAILY DOSE
     Dates: start: 20180606, end: 20180612
  6. MELOXICAM. [Concomitant]
     Active Substance: MELOXICAM
     Indication: POLYARTHRITIS
     Dosage: 15 MG, AS NEEDED (PRN)
     Route: 048
     Dates: start: 20151029
  7. IMODIUM [Concomitant]
     Active Substance: LOPERAMIDE HYDROCHLORIDE
     Indication: IRRITABLE BOWEL SYNDROME
     Dosage: UNK
     Route: 048
     Dates: start: 20180507
  8. BENTYL [Concomitant]
     Active Substance: DICYCLOMINE HYDROCHLORIDE
     Indication: IRRITABLE BOWEL SYNDROME
     Dosage: 10 MG, AS NEEDED (PRN)
     Dates: start: 20180507
  9. HYDROCODONE [Concomitant]
     Active Substance: HYDROCODONE
     Indication: ARTHRITIS
     Dosage: UNK
     Route: 048
  10. BRIVARACETAM [Suspect]
     Active Substance: BRIVARACETAM
     Dosage: 100 MG, ONCE DAILY (QD)
     Dates: start: 20180824, end: 20180824
  11. ADVIL [Concomitant]
     Active Substance: IBUPROFEN
     Indication: ARTHRITIS
     Dosage: 400 MG, AS NEEDED (PRN)
  12. BRIVARACETAM [Suspect]
     Active Substance: BRIVARACETAM
     Dosage: 100 MG, 2X/DAY (BID)
     Dates: start: 20180613, end: 20180823
  13. ACETAMINOPHEN. [Concomitant]
     Active Substance: ACETAMINOPHEN
     Indication: ARTHRITIS
     Dosage: UNK
     Dates: start: 20150603

REACTIONS (4)
  - Chest pain [Recovered/Resolved]
  - Off label use [Unknown]
  - Chest discomfort [Not Recovered/Not Resolved]
  - Dyspnoea [Not Recovered/Not Resolved]

NARRATIVE: CASE EVENT DATE: 20180823
